FAERS Safety Report 11865183 (Version 1)
Quarter: 2015Q4

REPORT INFORMATION
  Report Type: Spontaneous
  Country: US (occurrence: US)
  Receive Date: 20151223
  Receipt Date: 20151223
  Transmission Date: 20160305
  Serious: Yes (Hospitalization, Other)
  Sender: FDA-Public Use
  Company Number: US-ASTRAZENECA-2015SF27758

PATIENT
  Sex: Male

DRUGS (3)
  1. BROVANA [Concomitant]
     Active Substance: ARFORMOTEROL TARTRATE
  2. PULMICORT RESPULES [Suspect]
     Active Substance: BUDESONIDE
     Route: 055
  3. ADVAIR HFA [Concomitant]
     Active Substance: FLUTICASONE PROPIONATE\SALMETEROL XINAFOATE

REACTIONS (2)
  - Escherichia urinary tract infection [Unknown]
  - Blindness [Not Recovered/Not Resolved]
